FAERS Safety Report 23040602 (Version 1)
Quarter: 2023Q4

REPORT INFORMATION
  Report Type: Other
  Country: DE (occurrence: DE)
  Receive Date: 20231006
  Receipt Date: 20231006
  Transmission Date: 20240110
  Serious: Yes (Congenital Anomaly)
  Sender: FDA-Public Use
  Company Number: DE-EMBRYOTOX-202209949

PATIENT

DRUGS (12)
  1. DOXYLAMINE SUCCINATE\PYRIDOXINE HYDROCHLORIDE [Suspect]
     Active Substance: DOXYLAMINE SUCCINATE\PYRIDOXINE HYDROCHLORIDE
     Indication: Morning sickness
     Dosage: 20 [MG/D ] /8.4. - 16.4. GESTATIONAL WEEK
     Route: 064
     Dates: start: 20221021, end: 20221216
  2. CLOTRIMAZOLE [Concomitant]
     Active Substance: CLOTRIMAZOLE
     Indication: Fungal skin infection
     Dosage: 5.2. - 11. GESTATIONAL WEEK
     Route: 064
     Dates: start: 20220928, end: 20221107
  3. MICONAZOLE [Concomitant]
     Active Substance: MICONAZOLE
     Indication: Fungal skin infection
     Dosage: PRECONC. UNTIL GW 1+1, GW 2+2 TO GW 3+1, GW 4+6 TO GW 5+2 (0. - 5.2. GESTATIONAL WEEK )
     Route: 064
     Dates: start: 20220822, end: 20220928
  4. SELERGO [Concomitant]
     Indication: Fungal skin infection
     Dosage: 4.1. - 4.6. GESTATIONAL WEEK
     Route: 064
     Dates: start: 20220920, end: 20220925
  5. FLUPREDNIDENE ACETATE\MICONAZOLE NITRATE [Concomitant]
     Active Substance: FLUPREDNIDENE ACETATE\MICONAZOLE NITRATE
     Indication: Fungal skin infection
     Dosage: GW 1+2 UNTIL 2+1 AND GW 3+1 UNTIL 4+0 (1.2. - 4. GESTATIONAL WEEK )
     Route: 064
     Dates: start: 20220831, end: 20220919
  6. METHYLPREDNISOLONE ACEPONATE [Concomitant]
     Active Substance: METHYLPREDNISOLONE ACEPONATE
     Indication: Eczema
     Dosage: GW 23+4 TO GW 25+3, GW 30+0 TO GW 30+6 (23.4. - 30.6. GESTATIONAL WEEK )
     Route: 064
     Dates: start: 20230203, end: 20230326
  7. ACETAMINOPHEN [Concomitant]
     Active Substance: ACETAMINOPHEN
     Indication: Migraine
     Dosage: 2000 MILLIGRAM, PRN (16.3. - 38. GESTATIONAL WEEK )
     Route: 064
  8. PANTOPRAZOLE SODIUM [Concomitant]
     Active Substance: PANTOPRAZOLE SODIUM
     Indication: Morning sickness
     Dosage: 20 [MG/D ] (29.2. - 38.6. GESTATIONAL WEEK )
     Route: 064
     Dates: start: 20230315, end: 20230521
  9. FAMTOZINAMERAN\TOZINAMERAN [Concomitant]
     Active Substance: FAMTOZINAMERAN\TOZINAMERAN
     Indication: COVID-19 immunisation
     Dosage: 12.3. - 12.3. GESTATIONAL WEEK
     Route: 064
     Dates: start: 20221117, end: 20221117
  10. BOOSTRIX [Concomitant]
     Active Substance: TETANUS TOXOID, REDUCED DIPHTHERIA TOXOID AND ACELLULAR PERTUSSIS VACCINE, ADSORBED ANTIGENS
     Indication: Immunisation
     Dosage: 33.3. - 33.3. GESTATIONAL WEEK
     Route: 064
     Dates: start: 20230413, end: 20230413
  11. INFLUVAC [Concomitant]
     Active Substance: INFLUENZA VIRUS VACCINE TRIVALENT TYPE A+B
     Indication: Product used for unknown indication
     Route: 064
  12. MULTI [Concomitant]
     Indication: Prophylaxis of neural tube defect
     Dosage: 0. - 39. GESTATIONAL WEEK
     Route: 064
     Dates: start: 20220822, end: 20230522

REACTIONS (3)
  - Polydactyly [Not Recovered/Not Resolved]
  - Left ventricular false tendon [Unknown]
  - Atrial septal defect [Unknown]

NARRATIVE: CASE EVENT DATE: 20230501
